FAERS Safety Report 25858182 (Version 1)
Quarter: 2025Q3

REPORT INFORMATION
  Report Type: Spontaneous
  Country: IN (occurrence: IN)
  Receive Date: 20250929
  Receipt Date: 20250929
  Transmission Date: 20251020
  Serious: Yes (Other)
  Sender: REGENERON
  Company Number: IN-BAYER-2025A113612

PATIENT
  Age: 43 Year
  Sex: Male

DRUGS (1)
  1. EYLEA [Suspect]
     Active Substance: AFLIBERCEPT
     Indication: Macular oedema
     Dates: start: 20250712

REACTIONS (4)
  - Retinal vein occlusion [Recovering/Resolving]
  - Retinal occlusive vasculitis [Recovering/Resolving]
  - Visual acuity reduced [Unknown]
  - Wrong technique in product usage process [Unknown]

NARRATIVE: CASE EVENT DATE: 20250719
